FAERS Safety Report 4905471-X (Version None)
Quarter: 2006Q1

REPORT INFORMATION
  Report Type: 
  Country: None (occurrence: None)
  Receive Date: 20060203
  Receipt Date: 20060125
  Transmission Date: 20060701
  Serious: Yes (Other)
  Sender: FDA-Public Use
  Company Number: 2006US000129

PATIENT
  Age: 26 Year
  Sex: Male

DRUGS (2)
  1. PROTOPIC [Suspect]
     Indication: DERMATITIS
     Dosage: TOPICAL
     Route: 061
     Dates: start: 20031126, end: 20051201
  2. ELIDEL [Suspect]
     Indication: DERMATITIS
     Dosage: BID, TOPICAL
     Route: 061
     Dates: start: 20030812, end: 20051201

REACTIONS (1)
  - MYCOSIS FUNGOIDES [None]
